FAERS Safety Report 18145752 (Version 1)
Quarter: 2020Q3

REPORT INFORMATION
  Report Type: Spontaneous
  Country: CN (occurrence: CN)
  Receive Date: 20200813
  Receipt Date: 20200813
  Transmission Date: 20201103
  Serious: Yes (Other)
  Sender: FDA-Public Use
  Company Number: CN-VALIDUS PHARMACEUTICALS LLC-CN-2020VAL000669

PATIENT

DRUGS (5)
  1. CINACALCET. [Suspect]
     Active Substance: CINACALCET
     Dosage: AFTER 14D, THE DOSAGE WAS INCREASED AGAIN TO 75 MG/D FOR MAINTENANCE TREATMENT
     Route: 048
  2. CALCITRIOL. [Suspect]
     Active Substance: CALCITRIOL
     Indication: HYPERPARATHYROIDISM SECONDARY
     Dosage: 0.25 ?G, QD
     Route: 048
  3. CINACALCET. [Suspect]
     Active Substance: CINACALCET
     Indication: HYPERPARATHYROIDISM SECONDARY
     Dosage: INITIAL DOSAGE OF 25 MG/D, 1 TIME/D.
     Route: 048
  4. SEVELAMER [Suspect]
     Active Substance: SEVELAMER
     Indication: HYPERPARATHYROIDISM SECONDARY
     Dosage: 0.8 G, TID
     Route: 048
  5. CINACALCET. [Suspect]
     Active Substance: CINACALCET
     Dosage: AFTER 14D,THE DOSAGE WAS GRADUALLY INCREASED TO 50 MG/D ACCORDING TO PATIENT^S PHYSICAL CONDITION
     Route: 048

REACTIONS (1)
  - Liver injury [Unknown]
